FAERS Safety Report 11792837 (Version 5)
Quarter: 2016Q1

REPORT INFORMATION
  Report Type: Report from Study
  Country: FR (occurrence: FR)
  Receive Date: 20151202
  Receipt Date: 20160315
  Transmission Date: 20160525
  Serious: Yes (Life-Threatening, Hospitalization, Disabling, Other)
  Sender: FDA-Public Use
  Company Number: PHHY2015FR155622

PATIENT
  Age: 56 Year
  Sex: Female

DRUGS (6)
  1. GILENYA [Suspect]
     Active Substance: FINGOLIMOD HYDROCHLORIDE
     Indication: MULTIPLE SCLEROSIS
     Dosage: 0.5 MG, QD
     Route: 048
     Dates: start: 20150204, end: 20150801
  2. MITOXANTRONE [Suspect]
     Active Substance: MITOXANTRONE HYDROCHLORIDE
     Indication: QUADRIPLEGIA
     Dosage: UNK, ONCE/SINGLE
     Route: 041
     Dates: start: 20150930
  3. ESOMEPRAZOL//ESOMEPRAZOLE [Concomitant]
     Indication: PRODUCT USED FOR UNKNOWN INDICATION
     Dosage: 20 MG, QD
     Route: 065
  4. TYSABRI [Suspect]
     Active Substance: NATALIZUMAB
     Indication: MULTIPLE SCLEROSIS
     Dosage: UNK
     Route: 042
     Dates: start: 201002, end: 20150106
  5. MITOXANTRONE [Suspect]
     Active Substance: MITOXANTRONE HYDROCHLORIDE
     Indication: DISTURBANCE IN ATTENTION
  6. MIRTAZAPIN [Concomitant]
     Active Substance: MIRTAZAPINE
     Indication: DEPRESSION
     Dosage: 30 MG, QD
     Route: 065
     Dates: end: 201508

REACTIONS (21)
  - Muscle spasticity [Unknown]
  - Immune reconstitution inflammatory syndrome [Recovered/Resolved with Sequelae]
  - Neurological decompensation [Unknown]
  - Hemianopia homonymous [Unknown]
  - Dysphagia [Unknown]
  - Aspiration [Unknown]
  - Lung disorder [Unknown]
  - Disturbance in attention [Unknown]
  - Quadriplegia [Unknown]
  - Extensor plantar response [Unknown]
  - Foot deformity [Unknown]
  - Mobility decreased [Unknown]
  - Hypokinesia [Unknown]
  - Diplegia [Unknown]
  - Hoffmann^s sign [Unknown]
  - Cerebellar syndrome [Unknown]
  - Abasia [Unknown]
  - Aphasia [Unknown]
  - Neutropenia [Unknown]
  - Fall [Unknown]
  - Hepatocellular injury [Unknown]

NARRATIVE: CASE EVENT DATE: 20150910
